FAERS Safety Report 10286172 (Version 2)
Quarter: 2014Q3

REPORT INFORMATION
  Report Type: Spontaneous
  Country: JP (occurrence: None)
  Receive Date: 20140703
  Receipt Date: 20140729
  Transmission Date: 20150326
  Serious: Yes (Hospitalization)
  Sender: FDA-Public Use
  Company Number: VAL_03190_2014

PATIENT
  Age: 48 Year
  Sex: Male

DRUGS (5)
  1. PARLODEL [Suspect]
     Active Substance: BROMOCRIPTINE MESYLATE
     Indication: PITUITARY TUMOUR BENIGN
     Dosage: [2 DF DAILY]
     Route: 048
     Dates: start: 2009
  2. REMITCH [Concomitant]
     Active Substance: NALFURAFINE HYDROCHLORIDE
  3. PAXIL /000830802/ [Concomitant]
  4. RISPERDAL [Suspect]
     Active Substance: RISPERIDONE
     Indication: PRODUCT USED FOR UNKNOWN INDICATION
     Route: 048
     Dates: start: 20140521, end: 20140616
  5. PARLODEL [Suspect]
     Active Substance: BROMOCRIPTINE MESYLATE
     Indication: HYPERPROLACTINAEMIA
     Dosage: [2 DF DAILY]
     Route: 048
     Dates: start: 2009

REACTIONS (2)
  - Dizziness [None]
  - Drug level increased [None]

NARRATIVE: CASE EVENT DATE: 20140616
